FAERS Safety Report 6074713-2 (Version None)
Quarter: 2009Q1

REPORT INFORMATION
  Report Type: 
  Country: None (occurrence: None)
  Receive Date: 20090212
  Receipt Date: 20090205
  Transmission Date: 20090719
  Serious: Yes (Life-Threatening)
  Sender: FDA-Public Use
  Company Number: JP-SANOFI-SYNTHELABO-F01200801256

PATIENT
  Sex: Female
  Weight: 47.5 kg

DRUGS (9)
  1. LEUCOVORIN CALCIUM [Suspect]
     Dosage: UNK
     Route: 041
     Dates: start: 20080212, end: 20080212
  2. BUSCOPAN [Concomitant]
     Dosage: UNK
     Dates: start: 20080311, end: 20080522
  3. FLUOROURACIL [Suspect]
     Dosage: UNK
     Route: 041
     Dates: start: 20080212, end: 20080214
  4. CALONAL [Concomitant]
     Dosage: UNK
     Dates: start: 20080304, end: 20080522
  5. AVASTIN [Suspect]
     Route: 041
     Dates: start: 20080212, end: 20080212
  6. DECADRON [Concomitant]
     Dosage: UNK
     Dates: start: 20070823, end: 20080212
  7. ELPLAT [Suspect]
     Dosage: UNK
     Route: 041
     Dates: start: 20071030, end: 20071030
  8. ELPLAT [Suspect]
     Indication: COLON CANCER RECURRENT
     Dosage: UNK
     Route: 041
     Dates: start: 20071030, end: 20071030
  9. KYTRIL [Concomitant]
     Dosage: UNK
     Dates: start: 20070823, end: 20080212

REACTIONS (1)
  - JEJUNAL PERFORATION [None]
